FAERS Safety Report 11915197 (Version 1)
Quarter: 2016Q1

REPORT INFORMATION
  Report Type: Spontaneous
  Country: US (occurrence: US)
  Receive Date: 20160114
  Receipt Date: 20160114
  Transmission Date: 20160526
  Serious: Yes (Other)
  Sender: FDA-Public Use
  Company Number: US-AMGEN-USASP2016002329

PATIENT
  Age: 62 Year
  Sex: Female

DRUGS (1)
  1. ENBREL [Suspect]
     Active Substance: ETANERCEPT
     Indication: RHEUMATOID ARTHRITIS
     Dosage: 50 MG, QWK
     Route: 065
     Dates: start: 2003

REACTIONS (8)
  - Musculoskeletal stiffness [Unknown]
  - Infection susceptibility increased [Unknown]
  - Asthma [Unknown]
  - Knee arthroplasty [Unknown]
  - Hysterectomy [Unknown]
  - Neoplasm malignant [Unknown]
  - Wound infection [Unknown]
  - Throat tightness [Unknown]

NARRATIVE: CASE EVENT DATE: 2005
